FAERS Safety Report 11850130 (Version 1)
Quarter: 2015Q4

REPORT INFORMATION
  Report Type: Spontaneous
  Country: US (occurrence: US)
  Receive Date: 20151218
  Receipt Date: 20151218
  Transmission Date: 20160305
  Serious: No
  Sender: FDA-Public Use
  Company Number: US-JNJFOC-20151113178

PATIENT
  Sex: Female
  Weight: 61.24 kg

DRUGS (4)
  1. DILTIAZEM [Concomitant]
     Active Substance: DILTIAZEM
     Indication: PALPITATIONS
     Route: 065
  2. TRAMADOL. [Concomitant]
     Active Substance: TRAMADOL
     Indication: PROCEDURAL PAIN
     Dosage: 1 PILL TWICE A NIGHT
     Route: 065
  3. TYLENOL EXTRA STRENGTH [Suspect]
     Active Substance: ACETAMINOPHEN
     Indication: PROCEDURAL PAIN
     Dosage: 1-2 CAPLETS
     Route: 048
     Dates: start: 201508
  4. DIGOXIN. [Concomitant]
     Active Substance: DIGOXIN
     Indication: PALPITATIONS
     Route: 065

REACTIONS (1)
  - Herpes zoster [Recovering/Resolving]
